FAERS Safety Report 14586396 (Version 1)
Quarter: 2018Q1

REPORT INFORMATION
  Report Type: Spontaneous
  Country: US (occurrence: US)
  Receive Date: 20180301
  Receipt Date: 20180301
  Transmission Date: 20180509
  Serious: Yes (Death, Other)
  Sender: FDA-Public Use
  Company Number: PHEH2018US007419

PATIENT
  Age: 75 Year
  Sex: Male

DRUGS (3)
  1. AMIODARONE HYDROCHLORIDE. [Suspect]
     Active Substance: AMIODARONE HYDROCHLORIDE
     Indication: ATRIAL FIBRILLATION
     Route: 065
  2. AMIODARONE HYDROCHLORIDE. [Suspect]
     Active Substance: AMIODARONE HYDROCHLORIDE
     Indication: ATRIAL FIBRILLATION
     Route: 048
  3. AMIODARONE TEVA [Suspect]
     Active Substance: AMIODARONE
     Indication: ATRIAL FIBRILLATION
     Route: 065

REACTIONS (20)
  - Traumatic lung injury [Fatal]
  - Chronic respiratory failure [Unknown]
  - Emotional distress [Unknown]
  - Wheezing [Unknown]
  - General physical health deterioration [Unknown]
  - Cough [Unknown]
  - Lung disorder [Unknown]
  - Anxiety [Unknown]
  - Disturbance in attention [Unknown]
  - Restlessness [Unknown]
  - Asthenia [Unknown]
  - Product use in unapproved indication [Unknown]
  - Acute respiratory failure [Unknown]
  - Dyspnoea [Unknown]
  - Interstitial lung disease [Fatal]
  - Fatigue [Unknown]
  - Toxicity to various agents [Fatal]
  - Injury [Unknown]
  - Nervousness [Unknown]
  - Irritability [Unknown]
